FAERS Safety Report 16228987 (Version 1)
Quarter: 2019Q2

REPORT INFORMATION
  Report Type: Spontaneous
  Country: US (occurrence: US)
  Receive Date: 20190423
  Receipt Date: 20190423
  Transmission Date: 20190711
  Serious: Yes (Other)
  Sender: FDA-Public Use
  Company Number: PHEH2019US016747

PATIENT
  Age: 70 Year
  Sex: Female

DRUGS (3)
  1. TAFINLAR [Suspect]
     Active Substance: DABRAFENIB MESYLATE
     Indication: METASTATIC MALIGNANT MELANOMA
     Dosage: 150 MG, UNK
     Route: 048
  2. MEKINIST [Suspect]
     Active Substance: TRAMETINIB DIMETHYL SULFOXIDE
     Indication: METASTATIC MALIGNANT MELANOMA
     Dosage: UNK UNK, QD
     Route: 048
  3. TAFINLAR [Suspect]
     Active Substance: DABRAFENIB MESYLATE
     Dosage: 75 MG, UNK
     Route: 048

REACTIONS (6)
  - Metastases to lung [Recovered/Resolved]
  - Pulmonary congestion [Recovered/Resolved]
  - Pulmonary oedema [Recovered/Resolved]
  - Mental status changes [Recovered/Resolved]
  - Hyponatraemia [Recovered/Resolved]
  - Oedema peripheral [Recovered/Resolved]
